FAERS Safety Report 6346179-6 (Version None)
Quarter: 2009Q3

REPORT INFORMATION
  Report Type: 
  Country: None (occurrence: None)
  Receive Date: 20090821
  Receipt Date: 20090618
  Transmission Date: 20100115
  Serious: No
  Sender: FDA-Public Use
  Company Number: 8047980

PATIENT
  Age: 47 Year
  Sex: Female
  Weight: 111.1 kg

DRUGS (12)
  1. CIMZIA [Suspect]
     Indication: CROHN'S DISEASE
     Dosage: 400 MG 1/ 2W SC
     Route: 058
     Dates: start: 20090520
  2. PREDNISONE TAB [Concomitant]
  3. DILANTIN [Concomitant]
  4. NEURONTIN [Concomitant]
  5. ZOLOFT [Concomitant]
  6. KLONOPIN [Concomitant]
  7. OMEPRAZOLE [Concomitant]
  8. AMITRIPTYLINE [Concomitant]
  9. LUNESTA [Concomitant]
  10. FLEXERIL [Concomitant]
  11. PERCOCET [Concomitant]
  12. NYSTATIN [Concomitant]

REACTIONS (4)
  - ABDOMINAL PAIN [None]
  - PRURITUS [None]
  - PRURITUS GENERALISED [None]
  - RASH [None]
